FAERS Safety Report 7676796-2 (Version None)
Quarter: 2011Q3

REPORT INFORMATION
  Report Type: 
  Country: None (occurrence: None)
  Receive Date: 20110805
  Receipt Date: 20110721
  Transmission Date: 20111222
  Serious: Yes (Other)
  Sender: FDA-Public Use
  Company Number: 2011SP002544

PATIENT
  Age: 8 Year
  Sex: Male

DRUGS (6)
  1. NASONEX [Concomitant]
  2. FLUTICASONE W/SALMETEROL [Concomitant]
  3. ALVESCO [Suspect]
     Dosage: 160 UG;QD;INHALATION, 320 UG;QD;INHALATION
     Route: 055
     Dates: start: 20101220, end: 20110103
  4. ALVESCO [Suspect]
     Dosage: 160 UG;QD;INHALATION, 320 UG;QD;INHALATION
     Route: 055
     Dates: start: 20100607, end: 20101219
  5. SINGULAIR [Concomitant]
  6. VENTOLIN [Concomitant]

REACTIONS (5)
  - HALLUCINATION [None]
  - DEPRESSION [None]
  - SLEEP DISORDER [None]
  - ANXIETY [None]
  - SELF-INJURIOUS IDEATION [None]
